FAERS Safety Report 12263588 (Version 1)
Quarter: 2016Q2

REPORT INFORMATION
  Report Type: Spontaneous
  Country: US (occurrence: None)
  Receive Date: 20160412
  Receipt Date: 20160412
  Transmission Date: 20160815
  Serious: Yes (Disabling)
  Sender: FDA-Public Use
  Company Number: None

PATIENT
  Age: 58 Year
  Sex: Female
  Weight: 90.72 kg

DRUGS (3)
  1. CARVEDILOL. [Concomitant]
     Active Substance: CARVEDILOL
  2. MULTIVITAMINS [Concomitant]
     Active Substance: VITAMINS
  3. CREST 3D WHITE LUXE [Suspect]
     Active Substance: POTASSIUM NITRATE\SODIUM FLUORIDE
     Indication: DENTAL COSMETIC PROCEDURE
     Dosage: TWICE A DAY BRUSH TEETH
     Route: 004
     Dates: start: 20160405, end: 20160410

REACTIONS (3)
  - Glossodynia [None]
  - Tenderness [None]
  - Pain [None]

NARRATIVE: CASE EVENT DATE: 20160405
